FAERS Safety Report 7075469-7 (Version None)
Quarter: 2010Q4

REPORT INFORMATION
  Report Type: 
  Country: None (occurrence: None)
  Receive Date: 20101030
  Receipt Date: 20101004
  Transmission Date: 20110411
  Serious: No
  Sender: FDA-Public Use
  Company Number: US-WYE-H17979310

PATIENT
  Sex: Female

DRUGS (5)
  1. PRISTIQ [Suspect]
     Indication: DEPRESSION
     Dosage: 50 MG, FREQUENCY UNSPECIFIED
     Route: 048
  2. PRISTIQ [Suspect]
     Indication: BIPOLAR DISORDER
  3. LUNESTA [Concomitant]
  4. HYDROXYZINE [Concomitant]
  5. TRAZODONE [Concomitant]

REACTIONS (1)
  - DRUG INEFFECTIVE [None]
